FAERS Safety Report 5766514-7 (Version None)
Quarter: 2008Q2

REPORT INFORMATION
  Report Type: 
  Country: None (occurrence: None)
  Receive Date: 20080612
  Receipt Date: 20080530
  Transmission Date: 20081010
  Serious: Yes (Other)
  Sender: FDA-Public Use
  Company Number: CA-ROCHE-568351

PATIENT

DRUGS (2)
  1. INTERFERON ALFA-2A [Suspect]
     Indication: HEPATITIS C
     Route: 058
  2. RIBAVIRIN [Suspect]
     Indication: HEPATITIS C
     Dosage: WEIGHT-BASED: 1000 MG FOR PATIENTS LESS THAN 75 KG, 1200 MG FOR PATIENTS 75 KG OR MORE
     Route: 048

REACTIONS (3)
  - ALANINE AMINOTRANSFERASE DECREASED [None]
  - NEUTROPHIL COUNT DECREASED [None]
  - WHITE BLOOD CELL COUNT DECREASED [None]
